FAERS Safety Report 11801348 (Version 2)
Quarter: 2016Q1

REPORT INFORMATION
  Report Type: Spontaneous
  Country: IT (occurrence: IT)
  Receive Date: 20151204
  Receipt Date: 20160111
  Transmission Date: 20160525
  Serious: Yes (Hospitalization)
  Sender: FDA-Public Use
  Company Number: PHHY2015IT150358

PATIENT
  Age: 68 Year
  Sex: Female
  Weight: 61 kg

DRUGS (5)
  1. LORAZEPAM. [Concomitant]
     Active Substance: LORAZEPAM
     Indication: INSOMNIA
     Route: 048
  2. CANRENONE [Concomitant]
     Active Substance: CANRENONE
     Indication: HYPERTENSION
     Dosage: 100 MG, UNK
     Route: 048
  3. FUROSEMIDE. [Concomitant]
     Active Substance: FUROSEMIDE
     Indication: PRODUCT USED FOR UNKNOWN INDICATION
     Dosage: 50 MG, UNK
     Route: 048
  4. TAFINLAR [Suspect]
     Active Substance: DABRAFENIB MESYLATE
     Indication: METASTATIC MALIGNANT MELANOMA
     Dosage: 300 MG, QD
     Route: 048
     Dates: start: 20151016, end: 20151023
  5. VALSARTAN. [Concomitant]
     Active Substance: VALSARTAN
     Indication: HYPERTENSION
     Dosage: 80 MG, UNK
     Route: 048

REACTIONS (6)
  - Gastrointestinal disorder [Recovered/Resolved]
  - Hyperpyrexia [Recovered/Resolved]
  - Diarrhoea [Recovered/Resolved]
  - Colitis ulcerative [Recovered/Resolved]
  - Drug intolerance [Unknown]
  - Nausea [Recovered/Resolved]

NARRATIVE: CASE EVENT DATE: 20151023
